FAERS Safety Report 17388264 (Version 3)
Quarter: 2020Q1

REPORT INFORMATION
  Report Type: Report from Study
  Country: US (occurrence: US)
  Receive Date: 20200206
  Receipt Date: 20200310
  Transmission Date: 20200409
  Serious: Yes (Hospitalization)
  Sender: FDA-Public Use
  Company Number: US-ACTELION-A-US2020-200795

PATIENT
  Sex: Female
  Weight: 46.71 kg

DRUGS (2)
  1. ADEMPAS [Concomitant]
     Active Substance: RIOCIGUAT
     Dosage: 2.5 MG, TID
  2. UPTRAVI [Suspect]
     Active Substance: SELEXIPAG
     Indication: PULMONARY ARTERIAL HYPERTENSION
     Dosage: 200 MCG, BID
     Route: 048
     Dates: start: 20200101, end: 202001

REACTIONS (12)
  - Malaise [Unknown]
  - Asthenia [Unknown]
  - Chills [Unknown]
  - Gastrointestinal haemorrhage [Unknown]
  - Diarrhoea [Unknown]
  - Cough [Unknown]
  - Pneumonia [Unknown]
  - Pericardial effusion [Unknown]
  - Pyrexia [Unknown]
  - Lung disorder [Unknown]
  - Diverticulitis [Unknown]
  - Dehydration [Unknown]
